FAERS Safety Report 21966717 (Version 2)
Quarter: 2023Q2

REPORT INFORMATION
  Report Type: Spontaneous
  Country: US (occurrence: US)
  Receive Date: 20230208
  Receipt Date: 20230509
  Transmission Date: 20230722
  Serious: No
  Sender: FDA-Public Use
  Company Number: US-SA-SAC20230206001319

PATIENT
  Age: 59 Year
  Sex: Male

DRUGS (1)
  1. DUPIXENT [Suspect]
     Active Substance: DUPILUMAB
     Indication: Eczema
     Dosage: 300 MG, OTHER
     Route: 058
     Dates: start: 202211, end: 20230502

REACTIONS (5)
  - Insomnia [Unknown]
  - Myalgia [Unknown]
  - Eye irritation [Unknown]
  - Eczema [Recovered/Resolved]
  - Arthralgia [Unknown]
